FAERS Safety Report 9365388 (Version 5)
Quarter: 2014Q1

REPORT INFORMATION
  Report Type: Report from Study
  Country: CA (occurrence: CA)
  Receive Date: 20130625
  Receipt Date: 20140313
  Transmission Date: 20141002
  Serious: Yes (Hospitalization, Other)
  Sender: FDA-Public Use
  Company Number: CA-ROCHE-1237767

PATIENT
  Age: 52 Year
  Sex: Female
  Weight: 90 kg

DRUGS (11)
  1. ACTEMRA [Suspect]
     Indication: RHEUMATOID ARTHRITIS
     Route: 042
     Dates: start: 20120814
  2. ACTEMRA [Suspect]
     Route: 042
  3. CELEBREX [Suspect]
     Indication: PRODUCT USED FOR UNKNOWN INDICATION
     Route: 065
     Dates: end: 2013
  4. TYLENOL #3 (CANADA) [Suspect]
     Indication: PRODUCT USED FOR UNKNOWN INDICATION
     Route: 065
     Dates: end: 2013
  5. RITUXAN [Suspect]
     Indication: RHEUMATOID ARTHRITIS
     Route: 042
  6. PREDNISONE [Suspect]
     Indication: PRODUCT USED FOR UNKNOWN INDICATION
     Route: 065
  7. PAXIL [Concomitant]
  8. NEXIUM [Concomitant]
  9. PERCOCET [Concomitant]
  10. ATACAND PLUS [Concomitant]
  11. CODEINE [Concomitant]

REACTIONS (3)
  - Rheumatoid arthritis [Unknown]
  - Hepatic steatosis [Unknown]
  - Hepatic pain [Not Recovered/Not Resolved]
